FAERS Safety Report 7578794-6 (Version None)
Quarter: 2011Q2

REPORT INFORMATION
  Report Type: 
  Country: None (occurrence: None)
  Receive Date: 20110628
  Receipt Date: 20110623
  Transmission Date: 20111010
  Serious: Yes (Life-Threatening)
  Sender: FDA-Public Use
  Company Number: US-SHIONOGI, INC-2011000102

PATIENT

DRUGS (5)
  1. EPINEPHRINE [Suspect]
     Indication: ANAPHYLACTIC REACTION
     Dosage: 0.3 MG, UNK
     Dates: start: 20080101
  2. ALLEGRA [Concomitant]
  3. GLUCOPHAGE [Concomitant]
  4. SIMVASTATIN [Concomitant]
  5. METOPROLOL TARTRATE [Concomitant]

REACTIONS (2)
  - DEVICE FAILURE [None]
  - PRODUCT QUALITY ISSUE [None]
